FAERS Safety Report 6296210-1 (Version None)
Quarter: 2009Q3

REPORT INFORMATION
  Report Type: 
  Country: None (occurrence: None)
  Receive Date: 20090804
  Receipt Date: 20090728
  Transmission Date: 20100115
  Serious: Yes (Other)
  Sender: FDA-Public Use
  Company Number: CA-ALLERGAN-0910615US

PATIENT
  Sex: Female

DRUGS (1)
  1. BOTOX [Suspect]
     Indication: BLADDER DISORDER
     Dosage: 300 UNITS, UNK

REACTIONS (1)
  - ACTIVITIES OF DAILY LIVING IMPAIRED [None]
